FAERS Safety Report 22241066 (Version 2)
Quarter: 2023Q2

REPORT INFORMATION
  Report Type: Spontaneous
  Country: JP (occurrence: JP)
  Receive Date: 20230421
  Receipt Date: 20230529
  Transmission Date: 20230722
  Serious: Yes (Other)
  Sender: FDA-Public Use
  Company Number: JP-DSPHARMA-2023SMP006407

PATIENT
  Age: 32 Year
  Sex: Female

DRUGS (12)
  1. LATUDA [Suspect]
     Active Substance: LURASIDONE HYDROCHLORIDE
     Indication: Negative symptoms in schizophrenia
     Dosage: 40 MG, QD
     Route: 048
     Dates: start: 20230323, end: 20230323
  2. LATUDA [Suspect]
     Active Substance: LURASIDONE HYDROCHLORIDE
     Dosage: 80 MG, QD
     Route: 048
     Dates: start: 20230324, end: 20230402
  3. SENNOSIDES A AND B [Concomitant]
     Active Substance: SENNOSIDES A AND B
     Indication: Constipation
     Dosage: 24 MG, QD, BEFORE 2022/12
     Route: 048
  4. RILMAZAFONE HYDROCHLORIDE [Concomitant]
     Active Substance: RILMAZAFONE HYDROCHLORIDE
     Indication: Insomnia
     Dosage: 2 MG, QD, BEFORE 2022/12
     Route: 048
  5. FAMOTIDINE [Concomitant]
     Active Substance: FAMOTIDINE
     Dosage: 20 MG, QD, BEFORE 2022/12
     Route: 048
  6. QUETIAPINE FUMARATE [Concomitant]
     Active Substance: QUETIAPINE FUMARATE
     Indication: Schizophrenia
     Dosage: 400 MG, QD, BEFORE 2022/12
     Route: 048
  7. ESZOPICLONE [Concomitant]
     Active Substance: ESZOPICLONE
     Indication: Insomnia
     Dosage: 2 MG, QD, BEFORE 2022/12
     Route: 048
  8. BLONANSERIN [Concomitant]
     Active Substance: BLONANSERIN
     Indication: Schizophrenia
     Dosage: 40 MG, QD, BEFORE 2022/12
     Route: 062
  9. ZYPREXA [Concomitant]
     Active Substance: OLANZAPINE
     Indication: Schizophrenia
     Dosage: 15 MG, TID, BEFORE 2022/12
     Route: 048
  10. RIVOTRIL [Concomitant]
     Active Substance: CLONAZEPAM
     Indication: Anxiety
     Dosage: 1.5 MG, TID, BEFORE 2022/12
     Route: 048
  11. RIVOTRIL [Concomitant]
     Active Substance: CLONAZEPAM
     Indication: Dyskinesia
  12. VALPROATE SODIUM [Concomitant]
     Active Substance: VALPROATE SODIUM
     Indication: Affect lability
     Dosage: 200 MG, QD, BEFORE 2022/12
     Route: 048

REACTIONS (1)
  - Hallucination, auditory [Recovered/Resolved]

NARRATIVE: CASE EVENT DATE: 20230401
